FAERS Safety Report 10328578 (Version 2)
Quarter: 2014Q3

REPORT INFORMATION
  Report Type: Spontaneous
  Country: IT (occurrence: None)
  Receive Date: 20140717
  Receipt Date: 20140826
  Transmission Date: 20150326
  Serious: Yes (Hospitalization)
  Sender: FDA-Public Use
  Company Number: 2434457

PATIENT
  Age: 63 Year
  Sex: Female

DRUGS (7)
  1. CYTARABINE. [Suspect]
     Active Substance: CYTARABINE
     Indication: DIFFUSE LARGE B-CELL LYMPHOMA RECURRENT
     Dosage: 12800 MG MILLIGRAM(S), CYCLICAL, INTRAVENOUS
     Route: 042
     Dates: start: 20140303, end: 20140405
  2. SOLDESAM [Concomitant]
     Active Substance: DEXAMETHASONE
  3. HALOPERIDOL. [Concomitant]
     Active Substance: HALOPERIDOL
  4. RITUXIMAB [Suspect]
     Active Substance: RITUXIMAB
     Indication: DIFFUSE LARGE B-CELL LYMPHOMA RECURRENT
     Dosage: 600 MG MILLIGRAM(S), CYCLICAL, INTRAVENOUS
     Route: 042
     Dates: start: 20140301, end: 20140402
  5. METHOTREXATE [Suspect]
     Active Substance: METHOTREXATE
     Indication: DIFFUSE LARGE B-CELL LYMPHOMA RECURRENT
     Dosage: 5600 MG MILLIGRAM(S), CYCLICAL, INTRAVENOUS
     Route: 042
     Dates: start: 20140302, end: 20140403
  6. DEPOCYTE [Suspect]
     Active Substance: CYTARABINE
     Indication: DIFFUSE LARGE B-CELL LYMPHOMA RECURRENT
     Dosage: 50 MG MILLIGRAM(S), CYCLICAL, INTRATHECAL
     Route: 037
     Dates: start: 20140306, end: 20140407
  7. THIOTEPA. [Suspect]
     Active Substance: THIOTEPA
     Indication: DIFFUSE LARGE B-CELL LYMPHOMA RECURRENT
     Dosage: 48 MG MILLIGRAM(S), CYCLICAL, INTRAVENOUS
     Route: 042
     Dates: start: 20140305, end: 20140406

REACTIONS (7)
  - Nausea [None]
  - Craniocerebral injury [None]
  - Thrombocytopenia [None]
  - Malaise [None]
  - Fall [None]
  - Febrile neutropenia [None]
  - Dysphoria [None]

NARRATIVE: CASE EVENT DATE: 20140412
